FAERS Safety Report 21731138 (Version 2)
Quarter: 2023Q1

REPORT INFORMATION
  Report Type: Report from Study
  Country: US (occurrence: US)
  Receive Date: 20221215
  Receipt Date: 20230106
  Transmission Date: 20230418
  Serious: Yes (Hospitalization, Other)
  Sender: FDA-Public Use
  Company Number: US-GILEAD-2022-0609133

PATIENT
  Sex: Male

DRUGS (1)
  1. SOFOSBUVIR\VELPATASVIR [Suspect]
     Active Substance: SOFOSBUVIR\VELPATASVIR
     Indication: Product used for unknown indication
     Dosage: UNK
     Route: 065
     Dates: start: 20221101, end: 20221129

REACTIONS (6)
  - Hypertension [Unknown]
  - Dyspnoea [Unknown]
  - Suicidal ideation [Unknown]
  - Violence-related symptom [Unknown]
  - Illness [Unknown]
  - Abnormal loss of weight [Unknown]
